FAERS Safety Report 12719596 (Version 2)
Quarter: 2016Q4

REPORT INFORMATION
  Report Type: Report from Study
  Country: ES (occurrence: ES)
  Receive Date: 20160907
  Receipt Date: 20161006
  Transmission Date: 20170207
  Serious: Yes (Disabling)
  Sender: FDA-Public Use
  Company Number: PHHY2016ES119827

PATIENT
  Age: 16 Year
  Sex: Male
  Weight: 43 kg

DRUGS (2)
  1. TRAMETINIB [Suspect]
     Active Substance: TRAMETINIB
     Indication: NEUROFIBROMA
     Dosage: 0.025 MG/KG, QD
     Route: 048
     Dates: start: 20160813, end: 20160831
  2. LYRICA [Concomitant]
     Active Substance: PREGABALIN
     Indication: PAIN
     Dosage: 75 MG, QD
     Route: 065
     Dates: start: 2012

REACTIONS (6)
  - Depressed mood [Recovered/Resolved]
  - Neuropsychiatric syndrome [Recovered/Resolved]
  - Inappropriate affect [Recovered/Resolved]
  - Asthenia [Recovered/Resolved]
  - Product use issue [Unknown]
  - Feeling of despair [Recovered/Resolved]

NARRATIVE: CASE EVENT DATE: 20160813
